FAERS Safety Report 10961009 (Version 2)
Quarter: 2015Q1

REPORT INFORMATION
  Report Type: Spontaneous
  Country: FR (occurrence: FR)
  Receive Date: 20150327
  Receipt Date: 20150327
  Transmission Date: 20150721
  Serious: Yes (Hospitalization)
  Sender: FDA-Public Use
  Company Number: FR-TEVA-549838ISR

PATIENT
  Age: 80 Year
  Sex: Male

DRUGS (8)
  1. AZILECT [Suspect]
     Active Substance: RASAGILINE MESYLATE
     Indication: PARKINSON^S DISEASE
     Dosage: 1 DOSAGE FORMS DAILY;
     Route: 048
     Dates: end: 20141204
  2. MODOPAR LP 100 MG/25 MG [Suspect]
     Active Substance: BENSERAZIDE\LEVODOPA
     Dosage: 125 MG, 4 TIMES PER DAY
     Route: 048
  3. FUROSEMIDE. [Concomitant]
     Active Substance: FUROSEMIDE
  4. NEUPRO [Suspect]
     Active Substance: ROTIGOTINE
     Indication: PARKINSON^S DISEASE
     Dosage: 1 DOSAGE FORMS DAILY;
     Route: 062
     Dates: end: 20141204
  5. AMIODARONE [Concomitant]
     Active Substance: AMIODARONE
  6. MODOPAR LP 100 MG/25 MG [Suspect]
     Active Substance: BENSERAZIDE\LEVODOPA
     Indication: PARKINSON^S DISEASE
     Dosage: 250 MG, 4 TIMES PER DAY
     Route: 048
  7. TRAMADOL [Concomitant]
     Active Substance: TRAMADOL
  8. PARACETAMOL [Concomitant]
     Active Substance: ACETAMINOPHEN

REACTIONS (3)
  - Malaise [Recovering/Resolving]
  - Hypotension [Recovering/Resolving]
  - Loss of consciousness [Recovering/Resolving]

NARRATIVE: CASE EVENT DATE: 20141203
